FAERS Safety Report 4315810-9 (Version None)
Quarter: 2004Q1

REPORT INFORMATION
  Report Type: 
  Country: None (occurrence: None)
  Receive Date: 20040311
  Receipt Date: 20040311
  Transmission Date: 20041129
  Serious: No
  Sender: FDA-Public Use
  Company Number: None

PATIENT

DRUGS (2)
  1. LANOXIN [Suspect]
     Dosage: SINGLE DOSE AMPULE-IV 0.25 MG/1 ML
     Route: 042
  2. BENTYL [Suspect]
     Dosage: SINGLE DOSE AMPULE-IV 10MG/1ML
     Route: 042

REACTIONS (1)
  - MEDICATION ERROR [None]
